FAERS Safety Report 26082955 (Version 1)
Quarter: 2025Q4

REPORT INFORMATION
  Report Type: Spontaneous
  Country: US (occurrence: None)
  Receive Date: 20251124
  Receipt Date: 20251124
  Transmission Date: 20260118
  Serious: Yes (Other)
  Sender: FDA-CTU
  Company Number: None

PATIENT
  Age: 63 Year
  Sex: Male
  Weight: 87.75 kg

DRUGS (2)
  1. MOUNJARO [Suspect]
     Active Substance: TIRZEPATIDE
     Indication: Diabetes mellitus
     Dates: start: 20240615, end: 20240615
  2. OZEMPIC [Suspect]
     Active Substance: SEMAGLUTIDE

REACTIONS (1)
  - Retinopathy [None]

NARRATIVE: CASE EVENT DATE: 20250616
